FAERS Safety Report 8862191 (Version 3)
Quarter: 2012Q4

REPORT INFORMATION
  Report Type: 
  Country: US (occurrence: US)
  Receive Date: 20121026
  Receipt Date: 20121213
  Transmission Date: 20130627
  Serious: Yes (Hospitalization, Disabling, Other)
  Sender: FDA-Public Use
  Company Number: US-009507513-1203USA03384

PATIENT

DRUGS (2)
  1. FOSAMAX [Suspect]
     Indication: OSTEOPENIA
     Dosage: 70 mg, UNK
     Route: 048
     Dates: start: 200201, end: 200802
  2. FOSAMAX [Suspect]
     Indication: OSTEOPENIA
     Dosage: 70 mg, UNK
     Route: 048
     Dates: start: 200802, end: 20101111

REACTIONS (8)
  - Femur fracture [Unknown]
  - Bone density decreased [Unknown]
  - Femur fracture [Unknown]
  - Stress fracture [Unknown]
  - Osteoporosis [Unknown]
  - Open reduction of fracture [Unknown]
  - Blood cholesterol increased [Unknown]
  - Hypothyroidism [Not Recovered/Not Resolved]
